FAERS Safety Report 7099391-5 (Version None)
Quarter: 2010Q4

REPORT INFORMATION
  Report Type: 
  Country: None (occurrence: None)
  Receive Date: 20101112
  Receipt Date: 20101111
  Transmission Date: 20110411
  Serious: Yes (Death, Hospitalization)
  Sender: FDA-Public Use
  Company Number: SK-PFIZER INC-2006005084

PATIENT
  Age: 69 Year
  Sex: Female
  Weight: 72 kg

DRUGS (4)
  1. SUNITINIB MALATE [Suspect]
     Indication: RENAL CANCER METASTATIC
     Dosage: 50 MG, 1X/DAY
     Route: 048
     Dates: start: 20051111, end: 20051208
  2. LOKREN [Concomitant]
     Indication: HYPERTENSION
     Dosage: UNK
     Route: 048
  3. BLOCALCIN [Concomitant]
     Indication: HYPERTENSION
     Dosage: UNK
     Route: 048
  4. REFLUDAN [Concomitant]
     Indication: HYPERTENSION
     Dosage: UNK
     Route: 048

REACTIONS (2)
  - DIARRHOEA [None]
  - PNEUMOPERITONEUM [None]
